FAERS Safety Report 25142584 (Version 4)
Quarter: 2025Q2

REPORT INFORMATION
  Report Type: Report from Study
  Country: FR (occurrence: FR)
  Receive Date: 20250331
  Receipt Date: 20250630
  Transmission Date: 20250717
  Serious: No
  Sender: JAZZ
  Company Number: FR-JAZZ PHARMACEUTICALS-2025-FR-007980

PATIENT

DRUGS (1)
  1. EPIDIOLEX [Suspect]
     Active Substance: CANNABIDIOL
     Indication: Lennox-Gastaut syndrome
     Route: 048

REACTIONS (3)
  - Anaphylactic reaction [Recovered/Resolved]
  - Enterobiasis [Recovered/Resolved]
  - Viral infection [Recovered/Resolved]

NARRATIVE: CASE EVENT DATE: 20250101
